FAERS Safety Report 17057431 (Version 1)
Quarter: 2019Q4

REPORT INFORMATION
  Report Type: Report from Study
  Country: IT (occurrence: IT)
  Receive Date: 20191121
  Receipt Date: 20191121
  Transmission Date: 20200122
  Serious: Yes (Other)
  Sender: FDA-Public Use
  Company Number: IT-ROCHE-2478385

PATIENT

DRUGS (2)
  1. ALTEPLASE. [Suspect]
     Active Substance: ALTEPLASE
     Dosage: 0.9 MG/KG OF BODY WEIGHT, REMAINING 90% OF THE DOSE GIVEN BY CONTINUOUS INTRAVENOUS INFUSION (1 IN 1
     Route: 042
  2. ALTEPLASE. [Suspect]
     Active Substance: ALTEPLASE
     Indication: CEREBROVASCULAR ACCIDENT
     Dosage: 0.9 MG/KG OF BODY WEIGHT, 10% OF TOTAL DOSE ADMINISTERED AS AN INTRAVENOUS BOLUS OVER 1-2 MIN (1 IN
     Route: 042

REACTIONS (1)
  - Cholecystitis acute [Unknown]
